FAERS Safety Report 26006217 (Version 2)
Quarter: 2025Q4

REPORT INFORMATION
  Report Type: Report from Study
  Country: US (occurrence: US)
  Receive Date: 20251106
  Receipt Date: 20251116
  Transmission Date: 20260118
  Serious: Yes (Other)
  Sender: ABBVIE
  Company Number: US-ABBVIE-6531027

PATIENT
  Age: 64 Year
  Sex: Female

DRUGS (1)
  1. RINVOQ [Suspect]
     Active Substance: UPADACITINIB
     Indication: Rheumatoid arthritis
     Route: 048
     Dates: start: 20250730, end: 202509

REACTIONS (4)
  - Abdominal adhesions [Unknown]
  - Oesophageal stenosis [Recovering/Resolving]
  - Carpal tunnel syndrome [Recovering/Resolving]
  - Elbow operation [Unknown]

NARRATIVE: CASE EVENT DATE: 20250101
